FAERS Safety Report 23670993 (Version 1)
Quarter: 2024Q1

REPORT INFORMATION
  Report Type: Spontaneous
  Country: US (occurrence: None)
  Receive Date: 20240326
  Receipt Date: 20240326
  Transmission Date: 20240410
  Serious: No
  Sender: FDA-Public Use
  Company Number: US-ROCHE-3453661

PATIENT
  Age: 2 Year
  Sex: Male
  Weight: 13.2 kg

DRUGS (5)
  1. EVRYSDI [Suspect]
     Active Substance: RISDIPLAM
     Indication: Spinal muscular atrophy
     Dosage: 3.3 MG (4.4 ML)
     Route: 048
     Dates: start: 20231024
  2. EVRYSDI [Suspect]
     Active Substance: RISDIPLAM
  3. EVRYSDI [Suspect]
     Active Substance: RISDIPLAM
  4. EVRYSDI [Suspect]
     Active Substance: RISDIPLAM
  5. ZOLGENSMA [Concomitant]
     Active Substance: ONASEMNOGENE ABEPARVOVEC-XIOI

REACTIONS (2)
  - Rhinorrhoea [Not Recovered/Not Resolved]
  - Diarrhoea [Recovered/Resolved]

NARRATIVE: CASE EVENT DATE: 20231101
